FAERS Safety Report 13703503 (Version 1)
Quarter: 2017Q2

REPORT INFORMATION
  Report Type: Spontaneous
  Country: US (occurrence: US)
  Receive Date: 20170629
  Receipt Date: 20170629
  Transmission Date: 20170830
  Serious: No
  Sender: FDA-Public Use
  Company Number: GXBR2017US001713

PATIENT
  Sex: Female
  Weight: 60.32 kg

DRUGS (1)
  1. BIMATOPROST. [Suspect]
     Active Substance: BIMATOPROST
     Indication: ALOPECIA
     Dosage: 1 GTT ACROSS EYELIDS, QHS
     Route: 065

REACTIONS (1)
  - Madarosis [Unknown]
